FAERS Safety Report 6394003-8 (Version None)
Quarter: 2009Q4

REPORT INFORMATION
  Report Type: 
  Country: None (occurrence: None)
  Receive Date: 20091008
  Receipt Date: 20091002
  Transmission Date: 20100525
  Serious: Yes (Other)
  Sender: FDA-Public Use
  Company Number: US-SANOFI-SYNTHELABO-A03200904513

PATIENT
  Sex: Female

DRUGS (1)
  1. AMBIEN CR [Suspect]
     Indication: INSOMNIA
     Route: 048
     Dates: start: 20080101, end: 20090701

REACTIONS (5)
  - EXCORIATION [None]
  - FEELING ABNORMAL [None]
  - HEADACHE [None]
  - ROAD TRAFFIC ACCIDENT [None]
  - SOMNAMBULISM [None]
